FAERS Safety Report 7621153-8 (Version None)
Quarter: 2011Q3

REPORT INFORMATION
  Report Type: 
  Country: None (occurrence: None)
  Receive Date: 20110719
  Receipt Date: 20110713
  Transmission Date: 20111222
  Serious: Yes (Death)
  Sender: FDA-Public Use
  Company Number: PHHY2011BR62919

PATIENT
  Sex: Male

DRUGS (2)
  1. DIOVAN [Suspect]
     Dosage: 160 MG, UNK
  2. FORMOTEROL FUMARATE [Suspect]
     Dosage: 12 MG FORMOTEROL FUMARATE AND 400 MG BUDENOSIDE

REACTIONS (1)
  - DEATH [None]
